FAERS Safety Report 8687101 (Version 3)
Quarter: 2012Q4

REPORT INFORMATION
  Report Type: 
  Country: US (occurrence: US)
  Receive Date: 20120727
  Receipt Date: 20121011
  Transmission Date: 20130627
  Serious: No
  Sender: FDA-Public Use
  Company Number: US-PFIZER INC-2012179288

PATIENT
  Sex: Male

DRUGS (1)
  1. LIPITOR [Suspect]
     Indication: PLAQUE SHIFT
     Dosage: UNK, 1x/day
     Route: 048
     Dates: start: 2005, end: 20120723

REACTIONS (2)
  - Alopecia [Not Recovered/Not Resolved]
  - Emotional disorder [Unknown]
